FAERS Safety Report 13324202 (Version 5)
Quarter: 2017Q3

REPORT INFORMATION
  Report Type: Spontaneous
  Country: KR (occurrence: KR)
  Receive Date: 20170310
  Receipt Date: 20170801
  Transmission Date: 20171127
  Serious: Yes (Hospitalization)
  Sender: FDA-Public Use
  Company Number: KR-009507513-1703KOR003724

PATIENT
  Age: 46 Year
  Sex: Female
  Weight: 46.7 kg

DRUGS (17)
  1. LEUCOSTIM [Concomitant]
     Active Substance: FILGRASTIM
     Dosage: 150 MICROGRAM, ONCE
     Route: 058
     Dates: start: 20161031, end: 20161031
  2. DEXAMETHASONE SODIUM PHOSPHATE. [Concomitant]
     Active Substance: DEXAMETHASONE SODIUM PHOSPHATE
     Dosage: 12 MG, ONCE
     Route: 042
     Dates: start: 20161109, end: 20161109
  3. LEUCOSTIM [Concomitant]
     Active Substance: FILGRASTIM
     Indication: NEUTROPHIL COUNT DECREASED
     Dosage: 150 MICROGRAM, ONCE
     Route: 058
     Dates: start: 20161018, end: 20161018
  4. LYRICA [Concomitant]
     Active Substance: PREGABALIN
     Indication: PROPHYLAXIS
     Dosage: 1 DF, BID
     Route: 048
  5. CISPLAN [Concomitant]
     Active Substance: CISPLATIN
     Indication: BREAST CANCER
     Dosage: 55 MG, ONCE; CYCLE 3
     Route: 042
     Dates: start: 20161019, end: 20161019
  6. CISPLAN [Concomitant]
     Active Substance: CISPLATIN
     Indication: CHEMOTHERAPY
     Dosage: 55 MG, ONCE; CYCLE 4
     Route: 042
     Dates: start: 20161109, end: 20161109
  7. MAGO [Concomitant]
     Indication: CONSTIPATION
     Dosage: 2 DF, TID
     Route: 048
     Dates: end: 20161010
  8. IRCODON [Concomitant]
     Active Substance: OXYCODONE HYDROCHLORIDE
     Indication: PROPHYLAXIS
     Dosage: 1 DF, QD
     Route: 048
  9. OXYCONTIN [Concomitant]
     Active Substance: OXYCODONE HYDROCHLORIDE
     Indication: PROPHYLAXIS
     Dosage: 1 DF, BID
     Route: 048
  10. DEXAMETHASONE SODIUM PHOSPHATE. [Concomitant]
     Active Substance: DEXAMETHASONE SODIUM PHOSPHATE
     Indication: PREMEDICATION
     Dosage: 12 MG, ONCE
     Route: 042
     Dates: start: 20161019, end: 20161019
  11. NASERON [Concomitant]
     Dosage: 0.3 MG, ONCE
     Route: 042
     Dates: start: 20161109, end: 20161109
  12. EMEND (FOSAPREPITANT DIMEGLUMINE) [Suspect]
     Active Substance: FOSAPREPITANT DIMEGLUMINE
     Dosage: 150 MG, ONCE
     Route: 042
     Dates: start: 20161109, end: 20161109
  13. LASTET [Concomitant]
     Active Substance: ETOPOSIDE
     Indication: BREAST CANCER
     Dosage: 73.2 MG, QD; CYCLE 3
     Route: 042
     Dates: start: 20161019, end: 20161021
  14. LASTET [Concomitant]
     Active Substance: ETOPOSIDE
     Indication: CHEMOTHERAPY
     Dosage: 73.2 MG, QD; CYCLE 4
     Route: 042
     Dates: start: 20161109, end: 20161111
  15. EMEND (FOSAPREPITANT DIMEGLUMINE) [Suspect]
     Active Substance: FOSAPREPITANT DIMEGLUMINE
     Indication: PROPHYLAXIS OF NAUSEA AND VOMITING
     Dosage: 150 MG, ONCE
     Route: 042
     Dates: start: 20161019, end: 20161019
  16. NASERON [Concomitant]
     Indication: PREMEDICATION
     Dosage: 0.3 MG, ONCE
     Route: 042
     Dates: start: 20161019, end: 20161019
  17. LEUCOSTIM [Concomitant]
     Active Substance: FILGRASTIM
     Dosage: 150 MICROGRAM, ONCE
     Route: 058
     Dates: start: 20161103, end: 20161103

REACTIONS (3)
  - Diarrhoea [Recovered/Resolved]
  - Insomnia [Recovered/Resolved]
  - Pyrexia [Recovered/Resolved]

NARRATIVE: CASE EVENT DATE: 20161031
